FAERS Safety Report 24731150 (Version 1)
Quarter: 2024Q4

REPORT INFORMATION
  Report Type: Spontaneous
  Country: HU (occurrence: HU)
  Receive Date: 20241213
  Receipt Date: 20241213
  Transmission Date: 20250115
  Serious: Yes (Other)
  Sender: RANBAXY
  Company Number: HU-OGYI-0133224

PATIENT
  Age: 34 Year
  Sex: Female
  Weight: 59 kg

DRUGS (3)
  1. CIPROFLOXACIN [Suspect]
     Active Substance: CIPROFLOXACIN
     Indication: Cystitis
     Dosage: 500 MILLIGRAM, BID
     Route: 048
     Dates: start: 20241010, end: 20241012
  2. NORFLOXACIN [Suspect]
     Active Substance: NORFLOXACIN
     Indication: Cystitis
     Dosage: 400 MILLIGRAM, BID
     Route: 048
     Dates: start: 20240915, end: 20240917
  3. RABEMAN [Concomitant]
     Indication: Hyperchlorhydria
     Dosage: UNK
     Route: 065
     Dates: start: 20231110

REACTIONS (4)
  - Haematoma [Unknown]
  - Pain in extremity [Not Recovered/Not Resolved]
  - Pain in extremity [Not Recovered/Not Resolved]
  - Tendon rupture [Not Recovered/Not Resolved]
